FAERS Safety Report 12856291 (Version 1)
Quarter: 2016Q4

REPORT INFORMATION
  Report Type: Spontaneous
  Country: DE (occurrence: DE)
  Receive Date: 20161018
  Receipt Date: 20161018
  Transmission Date: 20170207
  Serious: Yes (Hospitalization, Other)
  Sender: FDA-Public Use
  Company Number: DE-CIPLA LTD.-2016DE19359

PATIENT

DRUGS (6)
  1. TRIAMCINOLONE ACETONIDE. [Suspect]
     Active Substance: TRIAMCINOLONE ACETONIDE
     Indication: VERTEBRAL FORAMINAL STENOSIS
     Dosage: 20MG/3 ML, WEEKLY OVER A PERIOD OF 6 WEEKS
     Route: 065
     Dates: start: 201206
  2. RITONAVIR. [Suspect]
     Active Substance: RITONAVIR
     Indication: HIV INFECTION
     Dosage: 100 MG, BID
     Route: 065
     Dates: start: 200507
  3. SAQUINAVIR [Suspect]
     Active Substance: SAQUINAVIR
     Indication: HIV INFECTION
     Dosage: 1000 MG, UNK
     Route: 065
     Dates: start: 200507
  4. HYDROCORTISONE. [Suspect]
     Active Substance: HYDROCORTISONE
     Indication: CUSHING^S SYNDROME
     Dosage: 15 MG/DAY
     Route: 065
  5. EMTRICITABINE [Suspect]
     Active Substance: EMTRICITABINE
     Indication: HIV INFECTION
     Dosage: UNK, QD
     Route: 065
     Dates: start: 200507
  6. TENOFOVIR [Suspect]
     Active Substance: TENOFOVIR
     Indication: HIV INFECTION
     Dosage: UNK, QD
     Route: 065
     Dates: start: 200507

REACTIONS (6)
  - Herpes zoster [Unknown]
  - Cushing^s syndrome [Recovered/Resolved]
  - Adrenal suppression [Recovered/Resolved]
  - Vertebral foraminal stenosis [Unknown]
  - Lumbar radiculopathy [Unknown]
  - Drug interaction [Unknown]

NARRATIVE: CASE EVENT DATE: 201208
